FAERS Safety Report 17769680 (Version 2)
Quarter: 2020Q2

REPORT INFORMATION
  Report Type: Spontaneous
  Country: US (occurrence: US)
  Receive Date: 20200512
  Receipt Date: 20200513
  Transmission Date: 20200714
  Serious: No
  Sender: FDA-Public Use
  Company Number: US-PFIZER INC-2019468201

PATIENT
  Age: 53 Year
  Sex: Female

DRUGS (1)
  1. RELPAX [Suspect]
     Active Substance: ELETRIPTAN HYDROBROMIDE
     Indication: HEADACHE
     Dosage: 40 MG, AS NEEDED (AS NEEDED , REPEAT AFTER 2 HOURS IF NECESSARY/QUANTITY FOR 90 DAYS: 12 PER BOX 3)

REACTIONS (2)
  - Product use in unapproved indication [Unknown]
  - Off label use [Unknown]
